FAERS Safety Report 16577529 (Version 1)
Quarter: 2019Q3

REPORT INFORMATION
  Report Type: Spontaneous
  Country: US (occurrence: US)
  Receive Date: 20190715
  Receipt Date: 20190715
  Transmission Date: 20191004
  Serious: Yes (Other)
  Sender: FDA-Public Use
  Company Number: None

PATIENT
  Age: 41 Year
  Sex: Female
  Weight: 75.15 kg

DRUGS (1)
  1. EMGALITY [Suspect]
     Active Substance: GALCANEZUMAB-GNLM
     Indication: MIGRAINE
     Dosage: ?          QUANTITY:2 INJECTION(S);OTHER FREQUENCY:1 TIME MONTHLY;?
     Route: 058
     Dates: start: 20190701, end: 20190701

REACTIONS (16)
  - Musculoskeletal disorder [None]
  - Spinal pain [None]
  - Lid lag [None]
  - Confusional state [None]
  - Movement disorder [None]
  - Gait disturbance [None]
  - Speech disorder [None]
  - Diplopia [None]
  - Nausea [None]
  - Impaired driving ability [None]
  - Crying [None]
  - Visual impairment [None]
  - Facial paralysis [None]
  - Hyperhidrosis [None]
  - Neck pain [None]
  - Tremor [None]

NARRATIVE: CASE EVENT DATE: 20190701
